FAERS Safety Report 14952938 (Version 1)
Quarter: 2018Q2

REPORT INFORMATION
  Report Type: Spontaneous
  Country: SI (occurrence: SI)
  Receive Date: 20180530
  Receipt Date: 20180530
  Transmission Date: 20180711
  Serious: Yes (Life-Threatening)
  Sender: FDA-Public Use
  Company Number: SI-ROCHE-2131347

PATIENT
  Age: 76 Year
  Sex: Female

DRUGS (6)
  1. PALEXIA [Concomitant]
     Active Substance: TAPENTADOL HYDROCHLORIDE
     Route: 065
  2. ACIPAN [Concomitant]
     Active Substance: PANTOPRAZOLE SODIUM
     Route: 065
  3. GAZYVARO [Suspect]
     Active Substance: OBINUTUZUMAB
     Indication: CHRONIC LYMPHOCYTIC LEUKAEMIA
     Route: 042
     Dates: start: 20180425, end: 20180425
  4. LYRICA [Concomitant]
     Active Substance: PREGABALIN
     Route: 065
  5. PRENESSA [Concomitant]
     Active Substance: PERINDOPRIL
     Route: 065
  6. METAMIZOL [Concomitant]
     Active Substance: METAMIZOLE SODIUM
     Dosage: DROPS
     Route: 065

REACTIONS (5)
  - Dyspnoea [Recovered/Resolved]
  - Neck pain [Recovered/Resolved]
  - Oxygen saturation decreased [Recovered/Resolved]
  - Hypertension [Recovered/Resolved]
  - Feeling hot [Recovered/Resolved]

NARRATIVE: CASE EVENT DATE: 20180425
